FAERS Safety Report 24277332 (Version 1)
Quarter: 2024Q3

REPORT INFORMATION
  Report Type: Spontaneous
  Country: IT (occurrence: IT)
  Receive Date: 20240903
  Receipt Date: 20240903
  Transmission Date: 20241017
  Serious: Yes (Death, Hospitalization, Other)
  Sender: MERCK
  Company Number: IT-009507513-2408ITA009579

PATIENT
  Age: 44 Year
  Sex: Male

DRUGS (1)
  1. PEMBROLIZUMAB [Suspect]
     Active Substance: PEMBROLIZUMAB
     Indication: Malignant melanoma
     Dosage: 200 MILLIGRAM, Q3W
     Dates: start: 20230807

REACTIONS (1)
  - Tumour hyperprogression [Fatal]

NARRATIVE: CASE EVENT DATE: 20230825
